FAERS Safety Report 12442756 (Version 1)
Quarter: 2016Q2

REPORT INFORMATION
  Report Type: Spontaneous
  Country: GB (occurrence: GB)
  Receive Date: 20160607
  Receipt Date: 20160607
  Transmission Date: 20160815
  Serious: Yes (Hospitalization, Other)
  Sender: FDA-Public Use
  Company Number: GB-TEVA-664631ACC

PATIENT
  Age: 25 Year
  Sex: Male

DRUGS (2)
  1. LORAZEPAM. [Concomitant]
     Active Substance: LORAZEPAM
  2. CITALOPRAM [Suspect]
     Active Substance: CITALOPRAM HYDROBROMIDE
     Indication: DEPRESSION
     Route: 048
     Dates: start: 20160430, end: 20160502

REACTIONS (18)
  - Muscle twitching [Recovered/Resolved]
  - Depersonalisation/derealisation disorder [Recovering/Resolving]
  - Feeling hot [Recovered/Resolved]
  - Sleep disorder [Recovering/Resolving]
  - Palpitations [Unknown]
  - Insomnia [Unknown]
  - Negative thoughts [Unknown]
  - Tachyphrenia [Unknown]
  - Paraesthesia [Recovered/Resolved]
  - Diarrhoea [Unknown]
  - Nausea [Unknown]
  - Restlessness [Recovered/Resolved]
  - Drug withdrawal syndrome [Recovered/Resolved]
  - Suicidal ideation [Recovered/Resolved with Sequelae]
  - Anxiety [Recovering/Resolving]
  - Fear [Unknown]
  - Energy increased [Unknown]
  - Headache [Unknown]

NARRATIVE: CASE EVENT DATE: 20160430
